FAERS Safety Report 21399137 (Version 1)
Quarter: 2022Q4

REPORT INFORMATION
  Report Type: Report from Study
  Country: PT (occurrence: PT)
  Receive Date: 20221001
  Receipt Date: 20221001
  Transmission Date: 20230112
  Serious: Yes (Other)
  Sender: FDA-Public Use
  Company Number: PT-TAKEDA-2022TUS068025

PATIENT

DRUGS (1)
  1. LISDEXAMFETAMINE DIMESYLATE [Suspect]
     Active Substance: LISDEXAMFETAMINE DIMESYLATE
     Indication: Attention deficit hyperactivity disorder
     Dosage: UNK
     Route: 065

REACTIONS (15)
  - Psychotic disorder [Unknown]
  - Dependence [Unknown]
  - Syncope [Unknown]
  - Arrhythmia [Unknown]
  - Weight decreased [Unknown]
  - Affect lability [Unknown]
  - Drug ineffective [Unknown]
  - Drug intolerance [Unknown]
  - Rebound effect [Unknown]
  - Cardiac disorder [Unknown]
  - Insomnia [Unknown]
  - Decreased appetite [Unknown]
  - Adverse drug reaction [Unknown]
  - Therapeutic response shortened [Unknown]
  - Off label use [Unknown]
